FAERS Safety Report 8279590-7 (Version None)
Quarter: 2012Q2

REPORT INFORMATION
  Report Type: 
  Country: None (occurrence: None)
  Receive Date: 20120412
  Receipt Date: 20120130
  Transmission Date: 20120825
  Serious: No
  Sender: FDA-Public Use
  Company Number: US-ASTRAZENECA-2012SE06328

PATIENT
  Age: 86 Year
  Sex: Female
  Weight: 66.2 kg

DRUGS (5)
  1. PRILOSEC [Suspect]
     Route: 048
  2. TOPROL-XL [Suspect]
     Indication: BLOOD PRESSURE ABNORMAL
     Route: 048
  3. LOSARTAN POTASSIUM [Concomitant]
     Indication: BLOOD PRESSURE ABNORMAL
  4. NEXIUM [Suspect]
     Indication: EROSIVE OESOPHAGITIS
     Route: 048
  5. NEXIUM [Suspect]
     Indication: GASTROOESOPHAGEAL REFLUX DISEASE
     Route: 048

REACTIONS (8)
  - AVERSION [None]
  - DRUG PRESCRIBING ERROR [None]
  - HEARING IMPAIRED [None]
  - ABDOMINAL DISCOMFORT [None]
  - SINUS DISORDER [None]
  - BODY HEIGHT DECREASED [None]
  - DIARRHOEA [None]
  - HEADACHE [None]
